FAERS Safety Report 9441251 (Version 1)
Quarter: 2013Q3

REPORT INFORMATION
  Report Type: Spontaneous
  Country: FR (occurrence: FR)
  Receive Date: 20130805
  Receipt Date: 20130805
  Transmission Date: 20140515
  Serious: Yes (Hospitalization)
  Sender: FDA-Public Use
  Company Number: FR-PFIZER INC-2013226849

PATIENT
  Age: 55 Year
  Sex: Female

DRUGS (9)
  1. TRIATEC [Suspect]
     Dosage: 2.5 MG, DAILY
     Route: 048
     Dates: start: 20130524
  2. METFORMIN [Concomitant]
     Dosage: UNK
     Dates: start: 20130528, end: 20130529
  3. KARDEGIC [Concomitant]
  4. AMLOR [Concomitant]
  5. LYRICA [Concomitant]
  6. OMEPRAZOLE [Concomitant]
  7. LAROXYL [Concomitant]
  8. LANTUS [Concomitant]
  9. ZOLPIDEM [Concomitant]

REACTIONS (2)
  - Tongue oedema [Recovered/Resolved]
  - Blood glucose abnormal [Unknown]
